FAERS Safety Report 9031044 (Version 3)
Quarter: 2013Q1

REPORT INFORMATION
  Report Type: Spontaneous
  Country: DK (occurrence: DK)
  Receive Date: 20130123
  Receipt Date: 20130214
  Transmission Date: 20140127
  Serious: Yes (Death, Other)
  Sender: FDA-Public Use
  Company Number: DK-PFIZER INC-2013028197

PATIENT
  Age: 64 Year
  Sex: Female

DRUGS (10)
  1. PACLITAXEL [Suspect]
     Indication: BREAST CANCER
     Dosage: UNK
  2. VINORELBINE [Suspect]
     Indication: BREAST CANCER
     Dosage: UNK
  3. LETROZOLE [Suspect]
     Indication: BREAST CANCER
     Dosage: UNK
  4. XELODA [Suspect]
     Indication: BREAST CANCER
     Dosage: UNK
     Route: 048
  5. ERIBULIN MESILATE [Suspect]
     Indication: BREAST CANCER
     Dosage: UNK
     Dates: start: 201202
  6. HERCEPTIN [Suspect]
     Indication: BREAST CANCER
     Dosage: UNK
  7. LAPATINIB [Suspect]
     Indication: BREAST CANCER
     Dosage: UNK
  8. EPIRUBICIN [Concomitant]
     Dosage: UNK
  9. CYCLOPHOSPHAMIDE [Concomitant]
     Dosage: UNK
  10. TAXOTERE [Concomitant]
     Dosage: UNK

REACTIONS (7)
  - Disease progression [Fatal]
  - Breast cancer [Fatal]
  - Sensory disturbance [Unknown]
  - Superior vena cava syndrome [Unknown]
  - Tenderness [Unknown]
  - Fracture [Unknown]
  - Lymphadenopathy [Unknown]
